FAERS Safety Report 5331229-6 (Version None)
Quarter: 2007Q2

REPORT INFORMATION
  Report Type: 
  Country: None (occurrence: None)
  Receive Date: 20070522
  Receipt Date: 20070515
  Transmission Date: 20071010
  Serious: Yes (Other)
  Sender: FDA-Public Use
  Company Number: JP-MERCK-0705USA03367

PATIENT

DRUGS (2)
  1. SINGULAIR [Suspect]
     Route: 048
  2. UNIPHYL [Concomitant]
     Route: 065

REACTIONS (1)
  - RHABDOMYOLYSIS [None]
